FAERS Safety Report 19705383 (Version 3)
Quarter: 2021Q3

REPORT INFORMATION
  Report Type: Spontaneous
  Country: JP (occurrence: JP)
  Receive Date: 20210816
  Receipt Date: 20210831
  Transmission Date: 20211014
  Serious: Yes (Other)
  Sender: FDA-Public Use
  Company Number: JP-PFIZER INC-202100987063

PATIENT
  Age: 26 Year
  Sex: Male

DRUGS (2)
  1. BESPONSA [Suspect]
     Active Substance: INOTUZUMAB OZOGAMICIN
     Indication: ACUTE LYMPHOCYTIC LEUKAEMIA
     Dosage: 0.8 MG/M2, CYCLIC
     Route: 041
  2. BESPONSA [Suspect]
     Active Substance: INOTUZUMAB OZOGAMICIN
     Dosage: 0.5 MG/M2, CYCLIC
     Route: 041

REACTIONS (5)
  - White blood cell count decreased [Unknown]
  - Alanine aminotransferase increased [Unknown]
  - Thrombin-antithrombin III complex increased [Unknown]
  - Fibrin D dimer increased [Unknown]
  - Blood alkaline phosphatase increased [Unknown]
